FAERS Safety Report 9043477 (Version 1)
Quarter: 2013Q1

REPORT INFORMATION
  Report Type: Report from Study
  Country: US (occurrence: US)
  Receive Date: 20130129
  Receipt Date: 20130129
  Transmission Date: 20140127
  Serious: No
  Sender: FDA-Public Use
  Company Number: US-ABBOTT-12P-163-0914526-00

PATIENT
  Sex: Male

DRUGS (2)
  1. HUMIRA 40 MG/0.8 ML PEN [Suspect]
     Indication: RHEUMATOID ARTHRITIS
     Route: 058
     Dates: start: 201106
  2. HUMIRA 40 MG/0.8 ML PEN [Suspect]
     Dosage: 2EA 40MG/0.8ML PENS/BX

REACTIONS (1)
  - Nasopharyngitis [Recovered/Resolved]
